FAERS Safety Report 11238190 (Version 2)
Quarter: 2015Q3

REPORT INFORMATION
  Report Type: Report from Study
  Country: US (occurrence: US)
  Receive Date: 20150703
  Receipt Date: 20150708
  Transmission Date: 20151125
  Serious: Yes (Other)
  Sender: FDA-Public Use
  Company Number: US-GLAXOSMITHKLINE-US2015GSK088888

PATIENT
  Age: 64 Year
  Sex: Female
  Weight: 91.4 kg

DRUGS (9)
  1. TRIAMCINOLONE ACETONIDE + BENZALCONIUM CHLORIDE + SALICYLIC ACID [Concomitant]
     Dosage: UNK
     Dates: start: 20140812
  2. TRAMETINIB [Suspect]
     Active Substance: TRAMETINIB
     Indication: MALIGNANT MELANOMA
     Dosage: UNK
     Dates: start: 20140714, end: 20150602
  3. CLINDAMYCIN [Concomitant]
     Active Substance: CLINDAMYCIN\CLINDAMYCIN PHOSPHATE
     Dosage: UNK
     Dates: start: 20140812
  4. DESONIDE. [Concomitant]
     Active Substance: DESONIDE
     Dosage: UNK
     Route: 048
     Dates: start: 20140811
  5. LIDOCAINE. [Concomitant]
     Active Substance: LIDOCAINE
     Dosage: UNK
     Dates: start: 20140714
  6. ACETAMINOPHEN. [Concomitant]
     Active Substance: ACETAMINOPHEN
     Dosage: 120 MG, UNK
     Dates: start: 20140623
  7. MINOCYCLINE [Concomitant]
     Active Substance: MINOCYCLINE\MINOCYCLINE HYDROCHLORIDE
     Dosage: 100 MG, QD
     Dates: start: 20140812
  8. MEDI4736 [Suspect]
     Active Substance: DURVALUMAB
     Indication: MALIGNANT MELANOMA
     Dosage: 10 MG/KG, UNK
     Dates: start: 20140714
  9. METRONIDAZOLE. [Concomitant]
     Active Substance: METRONIDAZOLE
     Dosage: UNK
     Dates: start: 20140812

REACTIONS (2)
  - Atrial fibrillation [Recovered/Resolved]
  - Ejection fraction decreased [Recovered/Resolved]

NARRATIVE: CASE EVENT DATE: 20150601
